FAERS Safety Report 14549264 (Version 1)
Quarter: 2018Q1

REPORT INFORMATION
  Report Type: Report from Study
  Country: US (occurrence: US)
  Receive Date: 20180219
  Receipt Date: 20180219
  Transmission Date: 20180509
  Serious: Yes (Other)
  Sender: FDA-Public Use
  Company Number: US-JNJFOC-20180224891

PATIENT
  Age: 54 Year
  Sex: Female

DRUGS (1)
  1. IMBRUVICA [Suspect]
     Active Substance: IBRUTINIB
     Indication: CHRONIC LYMPHOCYTIC LEUKAEMIA
     Route: 048
     Dates: end: 201707

REACTIONS (4)
  - Bronchitis [Recovered/Resolved]
  - Oedema peripheral [Recovered/Resolved]
  - Asthenia [Recovered/Resolved]
  - Pleural effusion [Recovered/Resolved]
